FAERS Safety Report 21825419 (Version 1)
Quarter: 2023Q1

REPORT INFORMATION
  Report Type: Spontaneous
  Country: US (occurrence: US)
  Receive Date: 20230105
  Receipt Date: 20230105
  Transmission Date: 20230418
  Serious: No
  Sender: FDA-Public Use
  Company Number: US-PFIZER INC-202300003432

PATIENT
  Age: 79 Year
  Sex: Male
  Weight: 72.57 kg

DRUGS (1)
  1. PAXLOVID [Suspect]
     Active Substance: NIRMATRELVIR\RITONAVIR
     Indication: COVID-19 treatment
     Dosage: UNK
     Dates: start: 20221230

REACTIONS (6)
  - Diarrhoea [Unknown]
  - Dysgeusia [Unknown]
  - Nausea [Unknown]
  - Malaise [Unknown]
  - Psychomotor hyperactivity [Unknown]
  - Insomnia [Unknown]
